FAERS Safety Report 25746529 (Version 1)
Quarter: 2025Q3

REPORT INFORMATION
  Report Type: Spontaneous
  Country: US (occurrence: US)
  Receive Date: 20250901
  Receipt Date: 20250901
  Transmission Date: 20251020
  Serious: Yes (Life-Threatening, Hospitalization)
  Sender: BAUSCH AND LOMB
  Company Number: US-BAUSCH-BH-2025-016731

PATIENT
  Age: 61 Year
  Sex: Female

DRUGS (2)
  1. METRONIDAZOLE [Suspect]
     Active Substance: METRONIDAZOLE
     Indication: Diverticulitis
     Dosage: 500 MG THREE TIMES DAILY
     Route: 065
     Dates: start: 202501, end: 2025
  2. CIPROFLOXACIN [Suspect]
     Active Substance: CIPROFLOXACIN
     Indication: Diverticulitis
     Dosage: 500 MILLIGRAMS (MG) TWICE DAILY
     Route: 065
     Dates: start: 202501, end: 2025

REACTIONS (4)
  - Immune thrombocytopenia [Recovered/Resolved]
  - Palpitations [Unknown]
  - Chest pain [Unknown]
  - Dyspnoea [Unknown]

NARRATIVE: CASE EVENT DATE: 20250101
